FAERS Safety Report 6190972-X (Version None)
Quarter: 2009Q2

REPORT INFORMATION
  Report Type: 
  Country: None (occurrence: None)
  Receive Date: 20090514
  Receipt Date: 20090506
  Transmission Date: 20091009
  Serious: Yes (Hospitalization)
  Sender: FDA-Public Use
  Company Number: AU-NOVOPROD-286946

PATIENT
  Age: 74 Year
  Sex: Male
  Weight: 91 kg

DRUGS (5)
  1. NOVOSEVEN [Suspect]
     Indication: HAEMORRHAGE
     Dosage: 8.4 MG, SINGLE
     Route: 042
     Dates: start: 20080619, end: 20080619
  2. AMICAR [Concomitant]
     Dosage: 5 G, UNK
  3. HEPARIN [Concomitant]
  4. PROTAMINE SULFATE [Concomitant]
  5. DDAVP [Concomitant]

REACTIONS (2)
  - CEREBROVASCULAR ACCIDENT [None]
  - TRANSIENT ISCHAEMIC ATTACK [None]
